FAERS Safety Report 5302063-8 (Version None)
Quarter: 2007Q2

REPORT INFORMATION
  Report Type: 
  Country: None (occurrence: None)
  Receive Date: 20070413
  Receipt Date: 20070403
  Transmission Date: 20071010
  Serious: No
  Sender: FDA-Public Use
  Company Number: B0461803A

PATIENT
  Age: 48 Year
  Sex: Female
  Weight: 59.8748 kg

DRUGS (12)
  1. CEPHAZOLIN SODIUM INJECTION (GENERIC) (CEFAZOLIN SODIUM) [Suspect]
     Dosage: 1 GRAM(S) / UNK / INTRAVENOUS
     Route: 042
     Dates: start: 20051005, end: 20051005
  2. ANESTHETIC [Concomitant]
  3. FOSFOMYCIN [Concomitant]
  4. DORMICUM [Concomitant]
  5. RINGERS ACETATE [Concomitant]
  6. SOLITA-T NO. 3 [Concomitant]
  7. FAMOTIDINE [Concomitant]
  8. RINGER'S [Concomitant]
  9. BUPIVACAINE HYDROCHLORIDE [Concomitant]
  10. MORPHINE [Concomitant]
  11. SODIUM CHLORIDE [Concomitant]
  12. CEFMETAZOLE SODIUM [Concomitant]

REACTIONS (2)
  - ANAPHYLACTIC REACTION [None]
  - HOT FLUSH [None]
